FAERS Safety Report 18107371 (Version 1)
Quarter: 2020Q3

REPORT INFORMATION
  Report Type: Spontaneous
  Country: US (occurrence: US)
  Receive Date: 20200803
  Receipt Date: 20200803
  Transmission Date: 20201103
  Serious: Yes (Other)
  Sender: FDA-Public Use
  Company Number: US-BAYER-2020-153294

PATIENT
  Sex: Female

DRUGS (1)
  1. MIRENA [Suspect]
     Active Substance: LEVONORGESTREL
     Indication: CONTRACEPTION
     Dosage: 20 ?G PER DAY CONTINUOUSLY
     Route: 015
     Dates: start: 20200625, end: 20200724

REACTIONS (5)
  - Menorrhagia [Unknown]
  - Muscle spasms [Unknown]
  - Embedded device [Recovered/Resolved]
  - Menstruation irregular [Unknown]
  - Genital haemorrhage [Unknown]
